FAERS Safety Report 11748914 (Version 2)
Quarter: 2015Q4

REPORT INFORMATION
  Report Type: Report from Study
  Country: IT (occurrence: IT)
  Receive Date: 20151118
  Receipt Date: 20151124
  Transmission Date: 20160304
  Serious: Yes (Hospitalization)
  Sender: FDA-Public Use
  Company Number: IT-ROCHE-1660256

PATIENT
  Age: 78 Year
  Sex: Male
  Weight: 76 kg

DRUGS (24)
  1. FUROSEMIDE. [Concomitant]
     Active Substance: FUROSEMIDE
     Indication: CHRONIC KIDNEY DISEASE
     Route: 048
     Dates: start: 20150922
  2. ANHYDROUS LACTOSE [Concomitant]
     Dosage: INDICATION: CARDIAC THERAPY
     Route: 048
     Dates: start: 2012
  3. PARACETAMOL [Concomitant]
     Active Substance: ACETAMINOPHEN
     Route: 048
     Dates: start: 20151012, end: 20151012
  4. HYDROCORTISONE. [Concomitant]
     Active Substance: HYDROCORTISONE
     Indication: INFUSION RELATED REACTION
     Route: 042
     Dates: start: 20150928, end: 20150928
  5. WARFARIN [Concomitant]
     Active Substance: WARFARIN
     Dosage: INDICATION: ANTITHROMBOSIS
     Route: 048
     Dates: start: 20151028, end: 20151029
  6. OBINUTUZUMAB [Suspect]
     Active Substance: OBINUTUZUMAB
     Indication: CHRONIC LYMPHOCYTIC LEUKAEMIA
     Dosage: MOST RECENT DOSE PRIOR TO THE EVENT ON 26/OCT/2015: 1000MG
     Route: 042
     Dates: start: 20150928
  7. LEVOTHYROXINE. [Concomitant]
     Active Substance: LEVOTHYROXINE
     Indication: HYPOTHYROIDISM
     Route: 048
     Dates: start: 2011
  8. FOLIC ACID. [Concomitant]
     Active Substance: FOLIC ACID
     Indication: ANAEMIA
     Route: 048
     Dates: start: 20150922
  9. CHLORPHENIRAMINE. [Concomitant]
     Active Substance: CHLORPHENIRAMINE
     Indication: PREMEDICATION
     Route: 042
     Dates: start: 20150928, end: 20150929
  10. FILGRASTIM [Concomitant]
     Active Substance: FILGRASTIM
     Indication: NEUTROPENIA
     Dosage: DOSE = 34U
     Route: 058
     Dates: start: 20151003
  11. CLARITHROMYCIN. [Concomitant]
     Active Substance: CLARITHROMYCIN
     Indication: SKIN INFECTION
     Route: 048
     Dates: start: 20151005, end: 20151009
  12. ALLOPURINOL. [Concomitant]
     Active Substance: ALLOPURINOL
     Indication: BLOOD URIC ACID
     Dosage: INDICATION: URIC ACID REDUCER
     Route: 048
     Dates: start: 20150926
  13. PREDNISONE. [Concomitant]
     Active Substance: PREDNISONE
     Indication: AUTOIMMUNE HAEMOLYTIC ANAEMIA
     Route: 048
     Dates: start: 2011
  14. RAMIPRIL. [Concomitant]
     Active Substance: RAMIPRIL
     Indication: HYPERTENSION
     Route: 048
     Dates: start: 2011
  15. PARACETAMOL [Concomitant]
     Active Substance: ACETAMINOPHEN
     Indication: PREMEDICATION
     Route: 048
     Dates: start: 20150928, end: 20150929
  16. METHYLPREDNISOLONE. [Concomitant]
     Active Substance: METHYLPREDNISOLONE
     Route: 042
     Dates: start: 20151012, end: 20151012
  17. CHLORAMBUCIL [Suspect]
     Active Substance: CHLORAMBUCIL
     Indication: CHRONIC LYMPHOCYTIC LEUKAEMIA
     Dosage: MOST RECENT DOSE PRIOR TO THE EVENT ON 26/OCT/2015: 38MG
     Route: 048
     Dates: start: 20150928
  18. HEPARIN [Concomitant]
     Active Substance: HEPARIN SODIUM
     Dosage: DOSE= 6000U, INDICATION: ANTITHROMBOSIS
     Route: 058
     Dates: start: 20150903, end: 20151028
  19. HEPARIN [Concomitant]
     Active Substance: HEPARIN SODIUM
     Dosage: DOSE= 6000U, INDICATION: ANTITHROMBOSIS
     Route: 058
     Dates: start: 20151101
  20. CEFTRIAXONE. [Concomitant]
     Active Substance: CEFTRIAXONE
     Indication: SKIN INFECTION
     Route: 042
     Dates: start: 20151009
  21. AMOXICILLIN/CLAVULANIC ACID [Concomitant]
     Active Substance: AMOXICILLIN\CLAVULANIC ACID
     Indication: SKIN INFECTION
     Route: 048
     Dates: start: 20151003, end: 20151009
  22. TAMSULOSINA [Concomitant]
     Active Substance: TAMSULOSIN HYDROCHLORIDE
     Indication: BENIGN PROSTATIC HYPERPLASIA
     Route: 048
  23. METHYLPREDNISOLONE. [Concomitant]
     Active Substance: METHYLPREDNISOLONE
     Indication: PREMEDICATION
     Route: 042
     Dates: start: 20150928, end: 20150929
  24. CHLORPHENIRAMINE. [Concomitant]
     Active Substance: CHLORPHENIRAMINE
     Route: 042
     Dates: start: 20151012, end: 20151012

REACTIONS (1)
  - Subcutaneous haematoma [Not Recovered/Not Resolved]

NARRATIVE: CASE EVENT DATE: 20151028
